FAERS Safety Report 12114032 (Version 1)
Quarter: 2016Q1

REPORT INFORMATION
  Report Type: Spontaneous
  Country: US (occurrence: US)
  Receive Date: 20160225
  Receipt Date: 20160225
  Transmission Date: 20160526
  Serious: No
  Sender: FDA-Public Use
  Company Number: US-PFIZER INC-2016114103

PATIENT
  Sex: Female

DRUGS (8)
  1. GRISEOFULVIN. [Suspect]
     Active Substance: GRISEOFULVIN
     Dosage: UNK
  2. MORPHINE SULFATE. [Suspect]
     Active Substance: MORPHINE SULFATE
     Dosage: UNK
  3. ZYPREXA [Suspect]
     Active Substance: OLANZAPINE
     Dosage: UNK
  4. AMOXICILLIN. [Suspect]
     Active Substance: AMOXICILLIN
     Dosage: UNK
  5. IMITREX [Suspect]
     Active Substance: SUMATRIPTAN SUCCINATE
     Dosage: UNK
  6. CEFACLOR. [Suspect]
     Active Substance: CEFACLOR
     Dosage: UNK
  7. LAMISIL [Suspect]
     Active Substance: TERBINAFINE HYDROCHLORIDE
     Dosage: UNK
  8. CHLORZOXAZONE. [Suspect]
     Active Substance: CHLORZOXAZONE
     Dosage: UNK

REACTIONS (1)
  - Drug hypersensitivity [Unknown]
